FAERS Safety Report 10401834 (Version 1)
Quarter: 2014Q3

REPORT INFORMATION
  Report Type: Spontaneous
  Country: US (occurrence: None)
  Receive Date: 20140820
  Receipt Date: 20140820
  Transmission Date: 20150326
  Serious: Yes (Other)
  Sender: FDA-Public Use
  Company Number: None

PATIENT
  Age: 54 Year
  Sex: Female
  Weight: 95.26 kg

DRUGS (1)
  1. SERTRALINE [Suspect]
     Active Substance: SERTRALINE HYDROCHLORIDE
     Indication: DEPRESSION
     Dates: start: 20140521, end: 20140621

REACTIONS (4)
  - Condition aggravated [None]
  - Asthenia [None]
  - Drug ineffective [None]
  - Affective disorder [None]

NARRATIVE: CASE EVENT DATE: 20140521
